FAERS Safety Report 25385923 (Version 2)
Quarter: 2025Q2

REPORT INFORMATION
  Report Type: Other
  Country: US (occurrence: US)
  Receive Date: 20250602
  Receipt Date: 20250611
  Transmission Date: 20250716
  Serious: Yes (Life-Threatening, Other)
  Sender: ALVOGEN
  Company Number: US-ALVOGEN-2025098070

PATIENT
  Sex: Female

DRUGS (3)
  1. FLECAINIDE [Suspect]
     Active Substance: FLECAINIDE
     Indication: Andersen-Tawil syndrome
  2. FLECAINIDE [Suspect]
     Active Substance: FLECAINIDE
     Indication: Andersen-Tawil syndrome
  3. FLECAINIDE [Suspect]
     Active Substance: FLECAINIDE
     Indication: Andersen-Tawil syndrome

REACTIONS (4)
  - Arrhythmic storm [Recovered/Resolved]
  - Toxicity to various agents [Unknown]
  - Cardiac arrest [Unknown]
  - Off label use [Unknown]
